FAERS Safety Report 11604111 (Version 1)
Quarter: 2015Q4

REPORT INFORMATION
  Report Type: Spontaneous
  Country: RO (occurrence: RO)
  Receive Date: 20151007
  Receipt Date: 20151007
  Transmission Date: 20160304
  Serious: Yes (Other)
  Sender: FDA-Public Use
  Company Number: RO-ACTAVIS-2015-20949

PATIENT
  Age: 41 Year
  Sex: Female

DRUGS (4)
  1. VINBLASTINE [Suspect]
     Active Substance: VINBLASTINE
     Indication: HODGKIN^S DISEASE NODULAR SCLEROSIS STAGE II
     Dosage: UNK
     Route: 065
  2. DOXORUBICIN (UNKNOWN) [Suspect]
     Active Substance: DOXORUBICIN
     Indication: HODGKIN^S DISEASE NODULAR SCLEROSIS STAGE II
     Dosage: UNK
     Route: 065
  3. DACARBAZINE. [Suspect]
     Active Substance: DACARBAZINE
     Indication: HODGKIN^S DISEASE NODULAR SCLEROSIS STAGE II
     Dosage: UNK
     Route: 065
  4. BLEOMYCIN [Suspect]
     Active Substance: BLEOMYCIN SULFATE
     Indication: HODGKIN^S DISEASE NODULAR SCLEROSIS STAGE II
     Dosage: UNK
     Route: 065

REACTIONS (2)
  - Human polyomavirus infection [Recovered/Resolved]
  - Cervical dysplasia [Recovered/Resolved]
